FAERS Safety Report 6508772-7 (Version None)
Quarter: 2009Q4

REPORT INFORMATION
  Report Type: 
  Country: None (occurrence: None)
  Receive Date: 20091221
  Receipt Date: 20091216
  Transmission Date: 20100525
  Serious: Yes (Other)
  Sender: FDA-Public Use
  Company Number: BR-ELI_LILLY_AND_COMPANY-BR200906002329

PATIENT
  Sex: Female
  Weight: 41 kg

DRUGS (6)
  1. FORTEO [Suspect]
     Indication: OSTEOPOROSIS
     Dosage: 20 UG, DAILY (1/D)
     Route: 058
     Dates: start: 20090521, end: 20091101
  2. ATENOLOL [Concomitant]
     Indication: HYPERTENSION
     Dosage: 100 MG, DAILY (1/D)
     Route: 048
     Dates: start: 19970101
  3. CAPTOPRIL [Concomitant]
     Indication: BLOOD PRESSURE
     Dosage: 25 MG, DAILY (1/D)
     Route: 048
     Dates: start: 20060101
  4. OMEPRAZOLE [Concomitant]
     Indication: GASTRIC DISORDER
     Dosage: 20 MG, DAILY (1/D)
     Route: 048
     Dates: start: 19990101
  5. BROMAZEPAM [Concomitant]
     Indication: AGITATION
     Dosage: UNK, EACH EVENING
     Route: 065
     Dates: start: 19790101, end: 19890101
  6. BROMAZEPAM [Concomitant]
     Dosage: 1 MG, DAILY (1/D)
     Route: 048
     Dates: start: 20040101

REACTIONS (10)
  - BLINDNESS [None]
  - BONE DISORDER [None]
  - DEPRESSED MOOD [None]
  - HYPOAESTHESIA [None]
  - LIMB DISCOMFORT [None]
  - MUSCLE SPASMS [None]
  - MUSCULAR WEAKNESS [None]
  - RADIUS FRACTURE [None]
  - TREMOR [None]
  - WEIGHT DECREASED [None]
